FAERS Safety Report 23552367 (Version 9)
Quarter: 2025Q4

REPORT INFORMATION
  Report Type: Report from Study
  Country: CA (occurrence: CA)
  Receive Date: 20240222
  Receipt Date: 20251015
  Transmission Date: 20260118
  Serious: Yes (Hospitalization, Other)
  Sender: GILEAD
  Company Number: CA-GLAXOSMITHKLINE-CA2024AMR019199

PATIENT
  Age: 48 Year
  Sex: Female

DRUGS (3)
  1. AMBRISENTAN [Suspect]
     Active Substance: AMBRISENTAN
     Indication: Pulmonary arterial hypertension
     Dosage: 10 MG, QD
     Route: 048
     Dates: start: 20181107
  2. CHLORHEXIDINE [Suspect]
     Active Substance: CHLORHEXIDINE
     Indication: Product used for unknown indication
     Dosage: UNK
     Route: 065
  3. EPOPROSTENOL [Concomitant]
     Active Substance: EPOPROSTENOL
     Indication: Product used for unknown indication
     Dosage: UNK

REACTIONS (10)
  - Vascular device occlusion [Recovered/Resolved]
  - Vascular device infection [Recovered/Resolved]
  - Skin irritation [Recovered/Resolved]
  - Dyspnoea [Recovered/Resolved]
  - Wound [Recovered/Resolved]
  - Swelling [Recovered/Resolved]
  - Skin induration [Recovered/Resolved]
  - Tenderness [Recovered/Resolved]
  - Parosmia [Recovered/Resolved]
  - Cough [Recovered/Resolved]

NARRATIVE: CASE EVENT DATE: 20250819
